FAERS Safety Report 7324707-1 (Version None)
Quarter: 2011Q1

REPORT INFORMATION
  Report Type: 
  Country: None (occurrence: None)
  Receive Date: 20110301
  Receipt Date: 20110222
  Transmission Date: 20110831
  Serious: Yes (Hospitalization)
  Sender: FDA-Public Use
  Company Number: US-ABBOTT-11P-163-0707115-00

PATIENT
  Sex: Female
  Weight: 62.198 kg

DRUGS (13)
  1. HUMIRA [Suspect]
     Indication: PSORIATIC ARTHROPATHY
     Dates: start: 20070101
  2. HUMIRA [Suspect]
     Dates: end: 20100901
  3. FOLIC ACID [Concomitant]
     Indication: VITAMIN SUPPLEMENTATION
  4. HUMIRA [Suspect]
  5. PREVACID [Concomitant]
     Indication: GASTROOESOPHAGEAL REFLUX DISEASE
  6. PREVASTATIN [Concomitant]
     Indication: BLOOD CHOLESTEROL INCREASED
  7. VITAMIN D [Concomitant]
     Indication: VITAMIN SUPPLEMENTATION
  8. KLOR-CON [Concomitant]
     Indication: MINERAL SUPPLEMENTATION
  9. FUROSEMIDE [Concomitant]
     Indication: HYPERTENSION
  10. IRON [Concomitant]
     Indication: MINERAL SUPPLEMENTATION
  11. ESTRADIOL [Concomitant]
     Indication: HORMONE REPLACEMENT THERAPY
  12. CALCIUM [Concomitant]
     Indication: MINERAL SUPPLEMENTATION
  13. GABAPENTIN [Suspect]
     Indication: FIBROMYALGIA

REACTIONS (9)
  - PNEUMONIA [None]
  - DYSPNOEA [None]
  - PRODUCTIVE COUGH [None]
  - RESPIRATORY DISORDER [None]
  - NASOPHARYNGITIS [None]
  - LUNG INFECTION [None]
  - ASTHENIA [None]
  - RESPIRATORY TRACT CONGESTION [None]
  - BRONCHITIS [None]
